FAERS Safety Report 24065887 (Version 1)
Quarter: 2024Q3

REPORT INFORMATION
  Report Type: Spontaneous
  Country: US (occurrence: None)
  Receive Date: 20240709
  Receipt Date: 20240709
  Transmission Date: 20241017
  Serious: No
  Sender: Public
  Company Number: None

PATIENT
  Sex: Female

DRUGS (1)
  1. BENLYSTA [Suspect]
     Active Substance: BELIMUMAB
     Indication: Systemic lupus erythematosus
     Dosage: 664MG EVERY 4 WEEKS INTRAVENOUSLY?
     Route: 042
     Dates: start: 202401

REACTIONS (3)
  - Condition aggravated [None]
  - Systemic lupus erythematosus [None]
  - Alopecia [None]
